FAERS Safety Report 24205465 (Version 1)
Quarter: 2024Q3

REPORT INFORMATION
  Report Type: Report from Study
  Country: US (occurrence: US)
  Receive Date: 20240813
  Receipt Date: 20240813
  Transmission Date: 20241016
  Serious: Yes (Other)
  Sender: TAIHO ONCOLOGY INC
  Company Number: US-TAIHOP-2024-007004

PATIENT
  Age: 68 Year
  Sex: Male
  Weight: 85.73 kg

DRUGS (3)
  1. LONSURF [Suspect]
     Active Substance: TIPIRACIL HYDROCHLORIDE\TRIFLURIDINE
     Indication: Metastases to liver
     Dosage: CYCLE 1 STARTED ON UNKNOWN DATE IN MAY/2024, CURRENT CYCLE UNKNOWN. FORM STRENGTH: 15MG AND 20MG.
     Route: 048
     Dates: start: 202405
  2. LONSURF [Suspect]
     Active Substance: TIPIRACIL HYDROCHLORIDE\TRIFLURIDINE
     Indication: Cholangiocarcinoma
  3. DOXYCYCLINE [Concomitant]
     Active Substance: DOXYCYCLINE\DOXYCYCLINE HYCLATE
     Indication: Product used for unknown indication

REACTIONS (3)
  - Immunodeficiency [Not Recovered/Not Resolved]
  - Arthralgia [Unknown]
  - Off label use [Unknown]
